FAERS Safety Report 14128303 (Version 1)
Quarter: 2017Q4

REPORT INFORMATION
  Report Type: Spontaneous
  Country: US (occurrence: US)
  Receive Date: 20171025
  Receipt Date: 20171025
  Transmission Date: 20180321
  Serious: Yes (Other)
  Sender: FDA-Public Use
  Company Number: None

PATIENT
  Age: 69 Year
  Sex: Female
  Weight: 74.25 kg

DRUGS (6)
  1. HYDROCHLOROTHIAZINE [Concomitant]
  2. COCONUT OIL [Concomitant]
     Active Substance: COCONUT OIL
  3. QVAR [Concomitant]
     Active Substance: BECLOMETHASONE DIPROPIONATE
  4. OXYBUTYNIN. [Concomitant]
     Active Substance: OXYBUTYNIN CHLORIDE
  5. TRAZODONE [Suspect]
     Active Substance: TRAZODONE HYDROCHLORIDE
     Indication: MICTURITION URGENCY
     Dosage: ?          QUANTITY:1 TABLET(S);OTHER ROUTE:MOUTH BT TABLET?
     Route: 048
     Dates: start: 20171017, end: 20171024
  6. SYMBICORT [Concomitant]
     Active Substance: BUDESONIDE\FORMOTEROL FUMARATE DIHYDRATE

REACTIONS (1)
  - Sleep disorder [None]

NARRATIVE: CASE EVENT DATE: 20171018
